FAERS Safety Report 7930618-0 (Version None)
Quarter: 2011Q4

REPORT INFORMATION
  Report Type: 
  Country: None (occurrence: None)
  Receive Date: 20111121
  Receipt Date: 20111116
  Transmission Date: 20120403
  Serious: Yes (Other)
  Sender: FDA-Public Use
  Company Number: GB-PFIZER INC-2011281470

PATIENT
  Age: 52 Year
  Sex: Female
  Weight: 63 kg

DRUGS (5)
  1. LIPITOR [Suspect]
     Indication: HYPERLIPIDAEMIA
     Dosage: 10 MG, 1X/DAY
     Route: 048
     Dates: start: 20111018, end: 20111103
  2. PHENOBARBITAL [Concomitant]
     Dosage: 30 MG, 1X/DAY
     Route: 048
  3. FLUTICASONE PROPIONATE/SALMETEROL [Concomitant]
  4. PHENYTOIN [Concomitant]
     Dosage: 100 MG, 2X/DAY
  5. VENTOLIN [Concomitant]
     Dosage: 2 DF, 4X/DAY

REACTIONS (3)
  - WHEEZING [None]
  - HEADACHE [None]
  - RASH [None]
